FAERS Safety Report 5598604-6 (Version None)
Quarter: 2008Q1

REPORT INFORMATION
  Report Type: 
  Country: None (occurrence: None)
  Receive Date: 20080122
  Receipt Date: 20070222
  Transmission Date: 20080703
  Serious: No
  Sender: FDA-Public Use
  Company Number: US-BAUSCH-2007BL000582

PATIENT
  Age: 36 Year
  Sex: Male

DRUGS (5)
  1. DESMOPRESSIN ACETATE [Suspect]
     Indication: ENURESIS
     Route: 045
     Dates: start: 20070116, end: 20070123
  2. UNITHROID [Concomitant]
  3. PREDNISONE [Concomitant]
  4. ANDRODERM [Concomitant]
  5. ALPHAGAN P [Concomitant]

REACTIONS (1)
  - DRUG INEFFECTIVE [None]
